FAERS Safety Report 6604547-9 (Version None)
Quarter: 2010Q1

REPORT INFORMATION
  Report Type: 
  Country: None (occurrence: None)
  Receive Date: 20100226
  Receipt Date: 20091119
  Transmission Date: 20100710
  Serious: No
  Sender: FDA-Public Use
  Company Number: A0818152A

PATIENT
  Age: 64 Year
  Sex: Female

DRUGS (5)
  1. LAMICTAL CD [Suspect]
     Indication: PARTIAL SEIZURES
     Dosage: 100MG TWICE PER DAY
     Route: 048
     Dates: start: 20081101
  2. MYSOLINE [Suspect]
     Route: 065
  3. TOPROL-XL [Concomitant]
  4. LOTENSIN [Concomitant]
  5. PROTONIX [Concomitant]

REACTIONS (3)
  - DIZZINESS [None]
  - DYSPHAGIA [None]
  - NAUSEA [None]
